FAERS Safety Report 6837753-9 (Version None)
Quarter: 2010Q3

REPORT INFORMATION
  Report Type: 
  Country: None (occurrence: None)
  Receive Date: 20100713
  Receipt Date: 20070521
  Transmission Date: 20110219
  Serious: No
  Sender: FDA-Public Use
  Company Number: US-PFIZER INC-2007041295

PATIENT
  Sex: Female
  Weight: 67.1 kg

DRUGS (4)
  1. CHANTIX [Suspect]
     Indication: SMOKING CESSATION THERAPY
     Dates: start: 20070101
  2. TOPAMAX [Concomitant]
     Indication: MIGRAINE
  3. FIORICET [Concomitant]
     Indication: MIGRAINE
  4. ZOCOR [Concomitant]
     Indication: MYOCARDIAL INFARCTION

REACTIONS (4)
  - ABDOMINAL PAIN UPPER [None]
  - DRY MOUTH [None]
  - NAUSEA [None]
  - VOMITING [None]
